FAERS Safety Report 7508638-X (Version None)
Quarter: 2011Q2

REPORT INFORMATION
  Report Type: 
  Country: None (occurrence: None)
  Receive Date: 20110527
  Receipt Date: 20100407
  Transmission Date: 20111010
  Serious: No
  Sender: FDA-Public Use
  Company Number: A0853924A

PATIENT
  Age: 67 Year
  Sex: Female

DRUGS (3)
  1. VENTOLIN [Suspect]
     Indication: CHRONIC OBSTRUCTIVE PULMONARY DISEASE
     Dosage: 3PUFF TWICE PER DAY
     Route: 055
     Dates: start: 20100406
  2. FISH OIL [Concomitant]
  3. VITAMIN D [Concomitant]

REACTIONS (3)
  - NAUSEA [None]
  - DIZZINESS [None]
  - DRUG ADMINISTRATION ERROR [None]
